FAERS Safety Report 9776060 (Version 1)
Quarter: 2013Q4

REPORT INFORMATION
  Report Type: Spontaneous
  Country: FR (occurrence: None)
  Receive Date: 20131219
  Receipt Date: 20131219
  Transmission Date: 20140711
  Serious: Yes (Hospitalization)
  Sender: FDA-Public Use
  Company Number: SYM-2013-13881

PATIENT
  Sex: 0

DRUGS (4)
  1. FLAGYL (METRONIDAZOLE) (METRONIDAZOLE) [Suspect]
     Indication: LUNG DISORDER
     Dates: start: 20130625, end: 20130630
  2. CEFOTAXIME SODIUM (CEFOTAXIME SODIUM) [Suspect]
     Indication: LUNG DISORDER
     Dates: start: 20130625, end: 20130630
  3. ZITHROMAX (AZITHROMYCIN) [Suspect]
     Indication: LUNG DISORDER
     Dates: start: 20130625, end: 20130630
  4. ANTIBIOTICS (ANTIBIOTICS) [Concomitant]

REACTIONS (2)
  - Dermatitis bullous [None]
  - Drug eruption [None]
